FAERS Safety Report 6150502-5 (Version None)
Quarter: 2009Q2

REPORT INFORMATION
  Report Type: 
  Country: None (occurrence: None)
  Receive Date: 20090409
  Receipt Date: 20090311
  Transmission Date: 20091009
  Serious: Yes (Other)
  Sender: FDA-Public Use
  Company Number: US-PFIZER INC-2009181845

PATIENT
  Sex: Female

DRUGS (5)
  1. LYRICA [Suspect]
     Indication: PAIN IN EXTREMITY
     Route: 048
     Dates: start: 20090201, end: 20090219
  2. NEXIUM [Concomitant]
  3. NORVASC [Concomitant]
  4. DILANTIN [Concomitant]
  5. KEFLEX [Concomitant]

REACTIONS (1)
  - CONVULSION [None]
